FAERS Safety Report 12294479 (Version 1)
Quarter: 2016Q2

REPORT INFORMATION
  Report Type: Spontaneous
  Country: US (occurrence: US)
  Receive Date: 20160422
  Receipt Date: 20160422
  Transmission Date: 20160815
  Serious: Yes (Other)
  Sender: FDA-Public Use
  Company Number: US-BEH-2016061352

PATIENT
  Sex: Female
  Weight: 72 kg

DRUGS (37)
  1. HIZENTRA [Suspect]
     Active Substance: HUMAN IMMUNOGLOBULIN G
     Route: 058
     Dates: start: 20151230
  2. DIPHENHYDRAMINE. [Concomitant]
     Active Substance: DIPHENHYDRAMINE
  3. KLOR-CON [Concomitant]
     Active Substance: POTASSIUM CHLORIDE
  4. ALBUTEROL. [Concomitant]
     Active Substance: ALBUTEROL
  5. LIDOCAINE-HYDROCORTISONE [Concomitant]
  6. HIZENTRA [Suspect]
     Active Substance: HUMAN IMMUNOGLOBULIN G
  7. ACETAMINOPHEN. [Concomitant]
     Active Substance: ACETAMINOPHEN
  8. BLACK COHOSH [Concomitant]
     Active Substance: BLACK COHOSH
  9. ONDANSETRON [Concomitant]
     Active Substance: ONDANSETRON
  10. STIOLTO RESPIMAT [Concomitant]
     Active Substance: OLODATEROL HYDROCHLORIDE\TIOTROPIUM BROMIDE MONOHYDRATE
  11. CORTICOSTEROIDS [Concomitant]
     Active Substance: CORTICOSTEROID NOS
  12. LEVOFLOXACIN. [Concomitant]
     Active Substance: LEVOFLOXACIN
  13. NITROGLYCERIN. [Concomitant]
     Active Substance: NITROGLYCERIN
  14. NORCO [Concomitant]
     Active Substance: ACETAMINOPHEN\HYDROCODONE BITARTRATE
  15. ATROPINE. [Concomitant]
     Active Substance: ATROPINE
  16. CALCIUM CARBONATE. [Concomitant]
     Active Substance: CALCIUM CARBONATE
  17. VITAMIN D [Concomitant]
     Active Substance: CHOLECALCIFEROL
  18. METHYLPREDNISOLONE. [Concomitant]
     Active Substance: METHYLPREDNISOLONE
  19. LMX [Concomitant]
     Active Substance: LIDOCAINE
  20. VICODIN [Concomitant]
     Active Substance: ACETAMINOPHEN\HYDROCODONE BITARTRATE
  21. BISACODYL. [Concomitant]
     Active Substance: BISACODYL
  22. FAMOTIDINE. [Concomitant]
     Active Substance: FAMOTIDINE
  23. CHLORHEXIDINE [Concomitant]
     Active Substance: CHLORHEXIDINE
  24. CORTICOSTEROIDS [Concomitant]
     Active Substance: CORTICOSTEROID NOS
  25. PREDNISONE. [Concomitant]
     Active Substance: PREDNISONE
  26. ZYRTEC [Concomitant]
     Active Substance: CETIRIZINE HYDROCHLORIDE
  27. LIDOCAINE-HYDROCORTISONE [Concomitant]
  28. GLUCAGON. [Concomitant]
     Active Substance: GLUCAGON
  29. HIZENTRA [Suspect]
     Active Substance: HUMAN IMMUNOGLOBULIN G
     Indication: SELECTIVE IGG SUBCLASS DEFICIENCY
  30. EPIPEN [Concomitant]
     Active Substance: EPINEPHRINE
  31. TEARS [Concomitant]
  32. MAGNESIUM [Concomitant]
     Active Substance: MAGNESIUM
  33. MUPIROCIN. [Concomitant]
     Active Substance: MUPIROCIN
  34. HIZENTRA [Suspect]
     Active Substance: HUMAN IMMUNOGLOBULIN G
  35. MUCINEX [Concomitant]
     Active Substance: GUAIFENESIN
  36. SENNA-S [Concomitant]
     Active Substance: DOCUSATE SODIUM\SENNOSIDES
  37. ENOXAPARIN [Concomitant]
     Active Substance: ENOXAPARIN

REACTIONS (1)
  - Tooth abscess [Unknown]
